FAERS Safety Report 8181266-1 (Version None)
Quarter: 2012Q1

REPORT INFORMATION
  Report Type: 
  Country: None (occurrence: None)
  Receive Date: 20120126
  Receipt Date: 20111222
  Transmission Date: 20120608
  Serious: Yes (Life-Threatening)
  Sender: FDA-Public Use
  Company Number: PHEH2011US03564

PATIENT
  Sex: Male

DRUGS (1)
  1. AFINITOR [Suspect]
     Indication: RENAL CELL CARCINOMA
     Dosage: 5 MG, BID ORAL
     Route: 048
     Dates: start: 20110401, end: 20110801

REACTIONS (3)
  - NEOPLASM PROGRESSION [None]
  - MALAISE [None]
  - NEOPLASM MALIGNANT [None]
